FAERS Safety Report 9204665 (Version 2)
Quarter: 2013Q4

REPORT INFORMATION
  Report Type: Spontaneous
  Country: US (occurrence: US)
  Receive Date: 20130402
  Receipt Date: 20131108
  Transmission Date: 20140711
  Serious: Yes (Hospitalization, Disabling)
  Sender: FDA-Public Use
  Company Number: US-BAYER-2013-039189

PATIENT
  Age: 30 Year
  Sex: Female
  Weight: 57.14 kg

DRUGS (15)
  1. YAZ [Suspect]
     Dosage: UNK
     Dates: start: 2006, end: 2009
  2. YASMIN [Suspect]
     Dosage: UNK
     Dates: start: 2006, end: 2009
  3. OCELLA [Suspect]
     Dosage: UNK
     Dates: start: 2006, end: 2009
  4. METOCLOPRAMIDE [Concomitant]
     Indication: NAUSEA
     Dosage: 4 TIMES DAILY AS NEEDED
  5. KETOROLAC [Concomitant]
     Indication: HEADACHE
     Dosage: 4 TIMES DAILY AS NEEDED
  6. CYCLOBENZAPRINE [Concomitant]
  7. CELEBREX [Concomitant]
     Dosage: 400 MG, UNK
  8. FLUVIRIN [Concomitant]
     Dosage: 0.5 ML, UNK
  9. BENTYL [Concomitant]
     Indication: ABDOMINAL PAIN
     Dosage: 20 MG, QID
     Dates: start: 20101109, end: 20101113
  10. ONDANSETRON [Concomitant]
     Indication: NAUSEA
     Dosage: 4 MG, UNK
     Dates: start: 20101109
  11. LEVSIN [Concomitant]
     Dosage: 0.125 MG, QID
     Dates: start: 20101111
  12. LORTAB [Concomitant]
     Dosage: UNK
     Dates: start: 20101111
  13. HYOSCYAMINE [Concomitant]
     Dosage: 1.125 MG, QID
  14. TRAMADOL [Concomitant]
     Dosage: 50 MG, UNK
  15. CIPROFLOXACIN [Concomitant]
     Dosage: 250 MG, BID

REACTIONS (8)
  - Gallbladder disorder [None]
  - Cholecystitis chronic [None]
  - Injury [None]
  - Deformity [None]
  - Anxiety [None]
  - Anhedonia [None]
  - Pain [None]
  - Emotional distress [None]
